FAERS Safety Report 8407695-6 (Version None)
Quarter: 2012Q2

REPORT INFORMATION
  Report Type: 
  Country: None (occurrence: None)
  Receive Date: 20120323
  Receipt Date: 20110714
  Transmission Date: 20120825
  Serious: Yes (Other)
  Sender: FDA-Public Use
  Company Number: 163-21880-11042559

PATIENT
  Age: 69 Year
  Sex: Male

DRUGS (3)
  1. PAMIDRONATE DISODIUM [Concomitant]
  2. REVLIMID [Suspect]
     Indication: MULTIPLE MYELOMA
     Dosage: 10 MG, 1 IN 1 D, PO
     Route: 048
     Dates: start: 20110408, end: 20110410
  3. BORTEZOMIB [Concomitant]

REACTIONS (3)
  - RASH [None]
  - EYE SWELLING [None]
  - DRUG HYPERSENSITIVITY [None]
